FAERS Safety Report 8979718 (Version 1)
Quarter: 2012Q4

REPORT INFORMATION
  Report Type: 
  Country: CH (occurrence: CH)
  Receive Date: 20121221
  Receipt Date: 20121221
  Transmission Date: 20130627
  Serious: Yes (Disabling, Other)
  Sender: FDA-Public Use
  Company Number: CH-TEVA-376361ISR

PATIENT
  Age: 84 Year
  Sex: Female
  Weight: 46 kg

DRUGS (5)
  1. UVAMIN [Suspect]
     Indication: BLADDER DISORDER
     Dosage: 100 Milligram Daily; 100 mg per day, treatment duration about 1 year
     Route: 048
     Dates: end: 20111125
  2. PRAVALOTIN [Suspect]
     Dosage: 40 Milligram Daily;
     Route: 048
  3. METFIN [Suspect]
     Dosage: 1000 Milligram Daily;
     Route: 048
  4. VISKALDIX [Suspect]
     Dosage: 1 Dosage forms Daily; Longterm therapy
     Route: 048
     Dates: end: 201204
  5. CALPEROS D3 [Suspect]
     Dosage: 1 Dosage forms Daily;
     Route: 048

REACTIONS (7)
  - Cough [Recovering/Resolving]
  - Crepitations [Recovering/Resolving]
  - Dyspnoea [Not Recovered/Not Resolved]
  - Hepatic enzyme increased [Recovered/Resolved]
  - Weight decreased [Not Recovered/Not Resolved]
  - Decreased appetite [Not Recovered/Not Resolved]
  - Interstitial lung disease [Unknown]
